FAERS Safety Report 7481558-5 (Version None)
Quarter: 2011Q2

REPORT INFORMATION
  Report Type: 
  Country: None (occurrence: None)
  Receive Date: 20110516
  Receipt Date: 20101208
  Transmission Date: 20111010
  Serious: Yes (Hospitalization)
  Sender: FDA-Public Use
  Company Number: US-ROCHE-539790

PATIENT
  Age: 91 Year
  Sex: Female

DRUGS (4)
  1. IBANDRONATE SODIUM [Suspect]
     Indication: OSTEOPOROSIS
     Route: 065
     Dates: start: 20070104
  2. HUMALOG [Concomitant]
  3. HUMULIN R [Concomitant]
  4. NEXIUM [Concomitant]

REACTIONS (3)
  - BACK INJURY [None]
  - FALL [None]
  - ONYCHOCLASIS [None]
